FAERS Safety Report 7656775-1 (Version None)
Quarter: 2011Q3

REPORT INFORMATION
  Report Type: 
  Country: None (occurrence: None)
  Receive Date: 20110804
  Receipt Date: 20110728
  Transmission Date: 20111222
  Serious: Yes (Other)
  Sender: FDA-Public Use
  Company Number: PHHY2011DK01020

PATIENT
  Sex: Female
  Weight: 80 kg

DRUGS (2)
  1. SERTRALINE HYDROCHLORIDE [Suspect]
     Indication: DEPRESSION
     Dosage: 50 MG, TID
     Route: 048
     Dates: start: 20080124
  2. SERTRALINE HYDROCHLORIDE [Suspect]
     Dosage: 3 TABLETTER AF 50 MG DAGLIGT.
     Route: 048
     Dates: start: 20080124

REACTIONS (2)
  - MATERNAL EXPOSURE DURING PREGNANCY [None]
  - INTRA-UTERINE DEATH [None]
